FAERS Safety Report 6983906-9 (Version None)
Quarter: 2010Q3

REPORT INFORMATION
  Report Type: 
  Country: None (occurrence: None)
  Receive Date: 20100914
  Receipt Date: 20090325
  Transmission Date: 20110219
  Serious: No
  Sender: FDA-Public Use
  Company Number: US-WYE-H08226109

PATIENT
  Age: 50 Year
  Sex: Female
  Weight: 56.75 kg

DRUGS (1)
  1. ADVIL PM [Suspect]
     Indication: NASOPHARYNGITIS
     Route: 048
     Dates: start: 20090207, end: 20090207

REACTIONS (6)
  - DRUG INEFFECTIVE [None]
  - FEELING JITTERY [None]
  - HALLUCINATION [None]
  - NERVOUSNESS [None]
  - PARANOIA [None]
  - PSYCHOMOTOR HYPERACTIVITY [None]
